FAERS Safety Report 22143472 (Version 1)
Quarter: 2023Q1

REPORT INFORMATION
  Report Type: Spontaneous
  Country: US (occurrence: US)
  Receive Date: 20230327
  Receipt Date: 20230327
  Transmission Date: 20230417
  Serious: No
  Sender: FDA-Public Use
  Company Number: US-002147023-NVSC2023US069421

PATIENT
  Sex: Male

DRUGS (2)
  1. BRIMONIDINE TARTRATE [Suspect]
     Active Substance: BRIMONIDINE TARTRATE
     Indication: Product used for unknown indication
     Dosage: 2 DRP, QD (0.15 %) (5ML LDP US) (ABOUT 6 MONTHS)
     Route: 065
  2. EQUATE [Concomitant]
     Indication: Product used for unknown indication
     Dosage: UNK (NON-FREQUENTLY)
     Route: 047

REACTIONS (1)
  - Foreign body sensation in eyes [Unknown]
